FAERS Safety Report 9377247 (Version 2)
Quarter: 2013Q3

REPORT INFORMATION
  Report Type: Spontaneous
  Country: GB (occurrence: GB)
  Receive Date: 20130701
  Receipt Date: 20130719
  Transmission Date: 20140515
  Serious: Yes (Congenital Anomaly)
  Sender: FDA-Public Use
  Company Number: GB-MYLANLABS-2013S1013661

PATIENT
  Sex: Male

DRUGS (1)
  1. CITALOPRAM [Suspect]
     Route: 064

REACTIONS (2)
  - Heart disease congenital [Unknown]
  - Exposure during pregnancy [Unknown]
